FAERS Safety Report 23601830 (Version 1)
Quarter: 2024Q1

REPORT INFORMATION
  Report Type: Report from Study
  Country: CA (occurrence: CA)
  Receive Date: 20240306
  Receipt Date: 20240306
  Transmission Date: 20240410
  Serious: Yes (Other)
  Sender: FDA-Public Use
  Company Number: CA-AMX-007503

PATIENT
  Age: 50 Year
  Sex: Male

DRUGS (5)
  1. SODIUM PHENYLBUTYRATE\TAURURSODIOL [Suspect]
     Active Substance: SODIUM PHENYLBUTYRATE\TAURURSODIOL
     Indication: Amyotrophic lateral sclerosis
     Dosage: 1 SACHET ONCE DAILY FOR 3WKS, THEN 1 SACHET TWICE DAILY.
     Route: 048
     Dates: start: 20230922, end: 2024
  2. Taro-Clotrimazole/Betamethasone Dipropionate cream [Concomitant]
     Indication: Product used for unknown indication
     Dosage: UNK
  3. SUSTAIN [Concomitant]
     Indication: Product used for unknown indication
  4. VITAMIN C [Concomitant]
     Active Substance: ASCORBIC ACID
     Indication: Product used for unknown indication
  5. RILUZOLE [Concomitant]
     Active Substance: RILUZOLE
     Indication: Product used for unknown indication
     Dosage: UNK

REACTIONS (7)
  - Choking [Unknown]
  - Product physical consistency issue [Unknown]
  - Product complaint [Unknown]
  - Oropharyngeal discomfort [Unknown]
  - Cough [Unknown]
  - Intentional dose omission [Unknown]
  - Incorrect dose administered [Unknown]
